FAERS Safety Report 9374390 (Version 2)
Quarter: 2013Q3

REPORT INFORMATION
  Report Type: Spontaneous
  Country: FR (occurrence: FR)
  Receive Date: 20130628
  Receipt Date: 20130705
  Transmission Date: 20140515
  Serious: Yes (Death)
  Sender: FDA-Public Use
  Company Number: PHHY2013FR065289

PATIENT
  Sex: 0
  Weight: 12.6 kg

DRUGS (3)
  1. EXJADE [Suspect]
     Indication: CONGENITAL APLASTIC ANAEMIA
     Dosage: 250 MG, (22 MG/KG DAILY)
     Dates: start: 20111103
  2. EXJADE [Suspect]
     Dosage: 39 MG /KG (500 MG DAILY)
     Dates: start: 20120125
  3. EXJADE [Suspect]
     Dosage: 35 MG /KG
     Dates: start: 201211

REACTIONS (1)
  - Infection [Fatal]
